FAERS Safety Report 25336786 (Version 1)
Quarter: 2025Q2

REPORT INFORMATION
  Report Type: Other
  Country: IT (occurrence: IT)
  Receive Date: 20250520
  Receipt Date: 20250520
  Transmission Date: 20250717
  Serious: Yes (Hospitalization, Other)
  Sender: MAYNE
  Company Number: IT-MAYNE PHARMA-2025MYN000276

PATIENT

DRUGS (3)
  1. BIJUVA [Suspect]
     Active Substance: ESTRADIOL\PROGESTERONE
     Indication: Hormone replacement therapy
     Dosage: 1 DOSAGE FORM 1 TIME PER DAY (1 TABLET 1 TIME PER DAY
     Route: 048
     Dates: start: 202408, end: 20250225
  2. FOLIC ACID [Concomitant]
     Active Substance: FOLIC ACID
     Indication: Folate deficiency
     Dosage: 2 TABLET, QWEEK
     Route: 048
  3. CALCIFEDIOL [Concomitant]
     Active Substance: CALCIFEDIOL
     Indication: Vitamin D deficiency
     Dosage: 1 TABLET, QMONTH
     Route: 048

REACTIONS (2)
  - Vitreous haemorrhage [Recovered/Resolved with Sequelae]
  - Vitreous haemorrhage [Recovered/Resolved with Sequelae]

NARRATIVE: CASE EVENT DATE: 20240924
